FAERS Safety Report 19706178 (Version 1)
Quarter: 2021Q3

REPORT INFORMATION
  Report Type: Spontaneous
  Country: FR (occurrence: FR)
  Receive Date: 20210817
  Receipt Date: 20210817
  Transmission Date: 20211014
  Serious: Yes (Hospitalization)
  Sender: FDA-Public Use
  Company Number: FR-TEVA-2021-FR-1941239

PATIENT
  Age: 71 Year
  Sex: Male
  Weight: 81 kg

DRUGS (4)
  1. CLOPIDOGREL (CHLORHYDRATE DE) [Suspect]
     Active Substance: CLOPIDOGREL HYDROCHLORIDE
     Dosage: THERAPY START AND END DATE: ASKU
     Route: 048
  2. CHLORHYDRATE DE LERCANIDIPINE [Concomitant]
     Active Substance: LERCANIDIPINE HYDROCHLORIDE
  3. COMIRNATY [Suspect]
     Active Substance: TOZINAMERAN
     Indication: COVID-19 IMMUNISATION
     Dosage: 1 DF
     Route: 030
     Dates: start: 20210513, end: 20210513
  4. ELEBRATO ELLIPTA [Concomitant]
     Active Substance: FLUTICASONE FUROATE\UMECLIDINIUM BROMIDE\VILANTEROL TRIFENATATE

REACTIONS (1)
  - Haemoptysis [Recovering/Resolving]

NARRATIVE: CASE EVENT DATE: 20210621
